FAERS Safety Report 4633952-5 (Version None)
Quarter: 2005Q2

REPORT INFORMATION
  Report Type: 
  Country: None (occurrence: None)
  Receive Date: 20050412
  Receipt Date: 20050412
  Transmission Date: 20051028
  Serious: No
  Sender: FDA-Public Use
  Company Number: None

PATIENT
  Sex: Female
  Weight: 74.32 kg

DRUGS (3)
  1. OXALIPLATIN [Suspect]
     Dosage: 85 MG/M2 IV DAY 1
     Route: 042
  2. LEUCOVORIN [Suspect]
     Dosage: 400 MG/M2 IV DAY 1
     Route: 042
  3. FLUOROURACIL [Suspect]
     Dosage: 400 MG/M2 IV BOLUS DAY 1, 2400 MG /M2 CIV OVER 46 HOURS ON DAYS 1 AND 2
     Route: 042
     Dates: start: 20050117

REACTIONS (7)
  - ATELECTASIS [None]
  - CHEST PAIN [None]
  - COUGH [None]
  - DYSPNOEA [None]
  - EFFUSION [None]
  - PULMONARY EMBOLISM [None]
  - PULMONARY MASS [None]
